FAERS Safety Report 12838632 (Version 1)
Quarter: 2016Q4

REPORT INFORMATION
  Report Type: Spontaneous
  Country: US (occurrence: US)
  Receive Date: 20161008
  Receipt Date: 20161008
  Transmission Date: 20170207
  Serious: Yes (Hospitalization)
  Sender: FDA-Public Use
  Company Number: None

PATIENT
  Age: 66 Year
  Sex: Male
  Weight: 82.7 kg

DRUGS (2)
  1. THIOTEPA. [Suspect]
     Active Substance: THIOTEPA
     Dates: end: 20160910
  2. CARMUSTINE (BCNU) [Suspect]
     Active Substance: CARMUSTINE
     Dates: end: 20160906

REACTIONS (12)
  - Delirium [None]
  - Dyspnoea [None]
  - Muscular weakness [None]
  - Ischaemia [None]
  - Mobility decreased [None]
  - Atrial fibrillation [None]
  - Electrocardiogram ST segment depression [None]
  - Activities of daily living impaired [None]
  - Fatigue [None]
  - Chest pain [None]
  - Confusional state [None]
  - Coronary artery stenosis [None]

NARRATIVE: CASE EVENT DATE: 20160906
